FAERS Safety Report 9391718 (Version 1)
Quarter: 2013Q3

REPORT INFORMATION
  Report Type: Report from Study
  Country: DE (occurrence: DE)
  Receive Date: 20130709
  Receipt Date: 20130709
  Transmission Date: 20140515
  Serious: Yes (Hospitalization, Other)
  Sender: FDA-Public Use
  Company Number: DE-GLAXOSMITHKLINE-B0898920A

PATIENT
  Age: 64 Year
  Sex: Male

DRUGS (6)
  1. PAZOPANIB [Suspect]
     Indication: METASTATIC RENAL CELL CARCINOMA
     Dosage: 800MG PER DAY
     Dates: start: 20130515
  2. SORAFENIB [Suspect]
     Indication: METASTATIC RENAL CELL CARCINOMA
     Dosage: 800MG PER DAY
     Dates: start: 20130311
  3. KARVEZIDE [Concomitant]
     Dosage: 300MG PER DAY
     Dates: start: 1999
  4. CARVEDILOL [Concomitant]
     Dosage: 25MG PER DAY
     Dates: start: 1999
  5. AMLODIPIN [Concomitant]
     Dosage: 10MG PER DAY
     Dates: start: 1999
  6. HALDOL [Concomitant]
     Dates: start: 20130610

REACTIONS (1)
  - Gastritis erosive [Recovered/Resolved]
